FAERS Safety Report 17853987 (Version 2)
Quarter: 2020Q2

REPORT INFORMATION
  Report Type: Spontaneous
  Country: US (occurrence: US)
  Receive Date: 20200603
  Receipt Date: 20200604
  Transmission Date: 20200714
  Serious: Yes (Other)
  Sender: FDA-Public Use
  Company Number: US-ASTRAZENECA-2020SE70989

PATIENT
  Sex: Female
  Weight: 74.8 kg

DRUGS (2)
  1. TUMS [Concomitant]
     Active Substance: CALCIUM CARBONATE
     Dosage: UNK
  2. NEXIUM 24HR [Suspect]
     Active Substance: ESOMEPRAZOLE MAGNESIUM
     Dosage: UNK
     Route: 048

REACTIONS (5)
  - Chronic kidney disease [Unknown]
  - Leukaemia [Unknown]
  - Diabetes mellitus [Unknown]
  - Anaemia [Unknown]
  - Drug effect less than expected [Unknown]
